FAERS Safety Report 12350922 (Version 2)
Quarter: 2017Q3

REPORT INFORMATION
  Report Type: Spontaneous
  Country: US (occurrence: US)
  Receive Date: 20160510
  Receipt Date: 20170718
  Transmission Date: 20171127
  Serious: No
  Sender: FDA-Public Use
  Company Number: US-VANDA PHARMACEUTICALS, INC-2016TASUS001171

PATIENT
  Sex: Male

DRUGS (1)
  1. HETLIOZ [Suspect]
     Active Substance: TASIMELTEON
     Indication: CIRCADIAN RHYTHM SLEEP DISORDER
     Dosage: 20 MG, DAILY
     Route: 048
     Dates: start: 201611

REACTIONS (2)
  - Drug ineffective [Unknown]
  - Drug effect decreased [Unknown]
